FAERS Safety Report 6493138-9 (Version None)
Quarter: 2009Q4

REPORT INFORMATION
  Report Type: 
  Country: None (occurrence: None)
  Receive Date: 20091214
  Receipt Date: 20091112
  Transmission Date: 20100525
  Serious: No
  Sender: FDA-Public Use
  Company Number: US-BAYER-200939605NA

PATIENT
  Age: 47 Year
  Sex: Female
  Weight: 79 kg

DRUGS (2)
  1. MIRENA [Suspect]
     Indication: VAGINAL HAEMORRHAGE
     Dosage: CONTINUOUS
     Route: 015
     Dates: start: 20090528
  2. ACETAMINOPHEN [Concomitant]

REACTIONS (3)
  - CHILLS [None]
  - PYREXIA [None]
  - VAGINAL HAEMORRHAGE [None]
